FAERS Safety Report 18921248 (Version 1)
Quarter: 2021Q1

REPORT INFORMATION
  Report Type: Other
  Country: JP (occurrence: JP)
  Receive Date: 20210222
  Receipt Date: 20210222
  Transmission Date: 20210420
  Serious: Yes (Other)
  Sender: FDA-Public Use
  Company Number: JP-ROCHE-2767989

PATIENT

DRUGS (3)
  1. NAB?PACLITAXEL [Suspect]
     Active Substance: PACLITAXEL
     Indication: NON-SMALL CELL LUNG CANCER METASTATIC
     Dosage: DAY 1 AND 8 EVERY 3 WEEKS
     Route: 065
  2. BEVACIZUMAB. [Suspect]
     Active Substance: BEVACIZUMAB
     Indication: NON-SMALL CELL LUNG CANCER METASTATIC
     Route: 065
  3. CARBOPLATIN. [Suspect]
     Active Substance: CARBOPLATIN
     Indication: NON-SMALL CELL LUNG CANCER METASTATIC
     Dosage: AUC 6 ON DAY 1
     Route: 065

REACTIONS (11)
  - Pneumonitis [Unknown]
  - Infection [Unknown]
  - Neuropathy peripheral [Unknown]
  - Leukopenia [Unknown]
  - Neutropenia [Unknown]
  - Hypertension [Unknown]
  - Fatigue [Unknown]
  - Pneumothorax [Unknown]
  - Febrile neutropenia [Unknown]
  - Platelet count decreased [Unknown]
  - Decreased appetite [Unknown]
